FAERS Safety Report 16023922 (Version 1)
Quarter: 2019Q1

REPORT INFORMATION
  Report Type: Spontaneous
  Country: US (occurrence: US)
  Receive Date: 20190205
  Receipt Date: 20190205
  Transmission Date: 20190418
  Serious: Yes (Other)
  Sender: FDA-Public Use
  Company Number: None

PATIENT
  Age: 70 Year
  Sex: Male
  Weight: 113.4 kg

DRUGS (1)
  1. LORAZEPAM LEADING BRAND 2MG [Suspect]
     Active Substance: LORAZEPAM
     Indication: PANIC ATTACK
     Route: 048
     Dates: start: 20181223, end: 20190118

REACTIONS (7)
  - Paranoia [None]
  - Amnesia [None]
  - Feeling abnormal [None]
  - Disturbance in attention [None]
  - Irritability [None]
  - Drug ineffective [None]
  - Dyskinesia [None]

NARRATIVE: CASE EVENT DATE: 20190118
